FAERS Safety Report 10388990 (Version 1)
Quarter: 2014Q3

REPORT INFORMATION
  Report Type: Spontaneous
  Country: US (occurrence: None)
  Receive Date: 20140812
  Receipt Date: 20140812
  Transmission Date: 20150326
  Serious: Yes (Death, Other)
  Sender: FDA-Public Use
  Company Number: AUR-APL-2014-08502

PATIENT
  Age: 65 Year
  Sex: Male

DRUGS (4)
  1. MELOXICAM (MELOXICAM) [Suspect]
     Active Substance: MELOXICAM
     Indication: PRODUCT USED FOR UNKNOWN INDICATION
  2. FUROSEMIDE (FUROSEMIDE) [Suspect]
     Active Substance: FUROSEMIDE
     Indication: PRODUCT USED FOR UNKNOWN INDICATION
  3. METHOTREXATE SODIUM (METHOTREXATE SODIUM) [Suspect]
     Active Substance: METHOTREXATE SODIUM
     Indication: PSORIASIS
  4. OMEPRAZOLE (OMEPRAZOLE) [Suspect]
     Active Substance: OMEPRAZOLE
     Indication: PRODUCT USED FOR UNKNOWN INDICATION

REACTIONS (11)
  - Haemoglobin decreased [None]
  - Haemodialysis [None]
  - Toxicity to various agents [None]
  - Drug interaction [None]
  - Acanthosis [None]
  - Skin erosion [None]
  - Pancytopenia [None]
  - Blood albumin decreased [None]
  - Psoriasis [None]
  - Haematocrit decreased [None]
  - Hepatic enzyme increased [None]
